FAERS Safety Report 11765901 (Version 4)
Quarter: 2016Q1

REPORT INFORMATION
  Report Type: Report from Study
  Country: US (occurrence: US)
  Receive Date: 20151122
  Receipt Date: 20160128
  Transmission Date: 20160525
  Serious: No
  Sender: FDA-Public Use
  Company Number: PHEH2015US023563

PATIENT
  Age: 58 Year
  Sex: Female

DRUGS (1)
  1. DESFERAL [Suspect]
     Active Substance: DEFEROXAMINE MESYLATE
     Indication: SICKLE CELL ANAEMIA
     Route: 042

REACTIONS (4)
  - Swelling [Recovered/Resolved]
  - Pain [Unknown]
  - Bone loss [Not Recovered/Not Resolved]
  - Rash [Recovered/Resolved]
